FAERS Safety Report 24736367 (Version 1)
Quarter: 2024Q4

REPORT INFORMATION
  Report Type: Spontaneous
  Country: GB (occurrence: GB)
  Receive Date: 20241216
  Receipt Date: 20241216
  Transmission Date: 20250115
  Serious: Yes (Hospitalization)
  Sender: ASTELLAS
  Company Number: GB-ASTELLAS-2024-AER-025005

PATIENT
  Age: 72 Year
  Sex: Male

DRUGS (1)
  1. MIRABEGRON [Suspect]
     Active Substance: MIRABEGRON
     Indication: Product used for unknown indication
     Dosage: 50MG ONCE A DAY
     Route: 065
     Dates: start: 202412, end: 202412

REACTIONS (1)
  - Syncope [Unknown]

NARRATIVE: CASE EVENT DATE: 20241201
